FAERS Safety Report 23728471 (Version 1)
Quarter: 2024Q2

REPORT INFORMATION
  Report Type: Spontaneous
  Country: US (occurrence: None)
  Receive Date: 20240409
  Receipt Date: 20240409
  Transmission Date: 20240716
  Serious: No
  Sender: FDA-Public Use
  Company Number: None

PATIENT
  Age: 74 Year
  Sex: Male
  Weight: 86.18 kg

DRUGS (1)
  1. ELIQUIS [Suspect]
     Active Substance: APIXABAN
     Indication: Atrial fibrillation
     Dosage: FREQUENCY : TWICE A DAY;?
     Route: 048
     Dates: start: 20240104

REACTIONS (8)
  - Hypergammaglobulinaemia benign monoclonal [None]
  - Back pain [None]
  - Pain in extremity [None]
  - Pain in extremity [None]
  - Myalgia [None]
  - Dyspepsia [None]
  - Abdominal pain upper [None]
  - Arthritis [None]

NARRATIVE: CASE EVENT DATE: 20240120
